FAERS Safety Report 20910602 (Version 1)
Quarter: 2022Q2

REPORT INFORMATION
  Report Type: Spontaneous
  Country: GB (occurrence: GB)
  Receive Date: 20220603
  Receipt Date: 20220603
  Transmission Date: 20220721
  Serious: Yes (Other)
  Sender: FDA-Public Use
  Company Number: GB-PERRIGO-22GB007921

PATIENT

DRUGS (3)
  1. IBUPROFEN [Suspect]
     Active Substance: IBUPROFEN
     Indication: Product used for unknown indication
     Dosage: 4 CAPSULES PER DAY (2 MORNING AND 2 AT NIGHT)
     Route: 065
     Dates: start: 20220516, end: 20220519
  2. FEMOSTONCONTI [Concomitant]
     Indication: Adverse drug reaction
     Dosage: 1MG/5MG ONCE A DAY AT NIGHT
     Route: 065
     Dates: start: 20220502
  3. LEVOTHYROXINE [Concomitant]
     Active Substance: LEVOTHYROXINE
     Indication: Adverse drug reaction
     Dosage: UNK
     Route: 065

REACTIONS (8)
  - Fatigue [Recovered/Resolved]
  - Dizziness [Recovered/Resolved]
  - Tinnitus [Recovered/Resolved]
  - Thirst [Recovered/Resolved]
  - Arthralgia [Recovered/Resolved]
  - Mental fatigue [Recovered/Resolved]
  - Headache [Recovered/Resolved]
  - Inhibitory drug interaction [Recovered/Resolved]

NARRATIVE: CASE EVENT DATE: 20220520
